FAERS Safety Report 23026102 (Version 2)
Quarter: 2023Q4

REPORT INFORMATION
  Report Type: Spontaneous
  Country: JP (occurrence: JP)
  Receive Date: 20231004
  Receipt Date: 20231025
  Transmission Date: 20240110
  Serious: Yes (Other)
  Sender: FDA-Public Use
  Company Number: JP-BoehringerIngelheim-2023-BI-264832

PATIENT
  Age: 73 Year
  Sex: Male

DRUGS (1)
  1. OFEV [Suspect]
     Active Substance: NINTEDANIB
     Indication: Pulmonary fibrosis
     Route: 065

REACTIONS (3)
  - Retroperitoneal fibrosis [Recovering/Resolving]
  - Glomerulonephritis membranous [Recovering/Resolving]
  - Nephrotic syndrome [Recovering/Resolving]
